FAERS Safety Report 17609197 (Version 1)
Quarter: 2020Q2

REPORT INFORMATION
  Report Type: Spontaneous
  Country: US (occurrence: US)
  Receive Date: 20200401
  Receipt Date: 20200401
  Transmission Date: 20200713
  Serious: No
  Sender: FDA-Public Use
  Company Number: US-AMGEN-USASP2020051004

PATIENT
  Sex: Female

DRUGS (20)
  1. ASPIRIN 81 [Concomitant]
     Active Substance: ASPIRIN
  2. CYCLOBENZAPRINE HCL [Concomitant]
     Active Substance: CYCLOBENZAPRINE HYDROCHLORIDE
  3. OMEGA 3 FISH OIL [FISH OIL] [Concomitant]
  4. TRULICITY [Concomitant]
     Active Substance: DULAGLUTIDE
  5. REPATHA [Suspect]
     Active Substance: EVOLOCUMAB
     Indication: HYPERLIPIDAEMIA
     Dosage: 140 MILLIGRAM PER MILLILITRE, Q2WK
     Route: 058
  6. GLUCAGON EMERGENCY KIT [Concomitant]
     Active Substance: GLUCAGON
  7. LOSARTAN POTASSIUM. [Concomitant]
     Active Substance: LOSARTAN POTASSIUM
  8. ALBUTEROL SULFATE. [Concomitant]
     Active Substance: ALBUTEROL SULFATE
     Dosage: 2.5 MILLIGRAM
  9. CARVEDILOL. [Concomitant]
     Active Substance: CARVEDILOL
  10. HYDROCHLOROTHIAZIDE. [Concomitant]
     Active Substance: HYDROCHLOROTHIAZIDE
  11. NOVOLIN N [Concomitant]
     Active Substance: INSULIN HUMAN
  12. NOVOLOG [Concomitant]
     Active Substance: INSULIN ASPART
  13. VENTOLIN HFA [Concomitant]
     Active Substance: ALBUTEROL SULFATE
  14. VITAMIN D [COLECALCIFEROL] [Concomitant]
     Active Substance: CHOLECALCIFEROL
     Dosage: UNK
  15. M END DMX [Concomitant]
  16. MAGOX [Concomitant]
     Dosage: 400 UNK
  17. VITAMIN C [Concomitant]
     Active Substance: ASCORBIC ACID
  18. MELOXICAM. [Concomitant]
     Active Substance: MELOXICAM
  19. METFORMIN HCL [Concomitant]
     Active Substance: METFORMIN HYDROCHLORIDE
  20. FENOFIBRATE. [Concomitant]
     Active Substance: FENOFIBRATE

REACTIONS (1)
  - Injection site reaction [Unknown]
